FAERS Safety Report 14740671 (Version 1)
Quarter: 2018Q2

REPORT INFORMATION
  Report Type: Spontaneous
  Country: US (occurrence: US)
  Receive Date: 20180404
  Receipt Date: 20180404
  Transmission Date: 20180711
  Serious: No
  Sender: FDA-Public Use
  Company Number: None

PATIENT
  Age: 65 Year
  Sex: Female

DRUGS (9)
  1. LISINOPRIL. [Concomitant]
     Active Substance: LISINOPRIL
  2. MELATONIN [Concomitant]
     Active Substance: MELATONIN
  3. OCALIVA [Suspect]
     Active Substance: OBETICHOLIC ACID
     Indication: PRIMARY BILIARY CHOLANGITIS
     Route: 048
     Dates: start: 20180306
  4. SIMVASTATIN. [Concomitant]
     Active Substance: SIMVASTATIN
  5. CENTRUM [Concomitant]
     Active Substance: VITAMINS
  6. METFORMIN [Concomitant]
     Active Substance: METFORMIN HYDROCHLORIDE
  7. URSODIOL. [Concomitant]
     Active Substance: URSODIOL
  8. GLIPIZIDE. [Concomitant]
     Active Substance: GLIPIZIDE
  9. LEVOTHYROXINE. [Concomitant]
     Active Substance: LEVOTHYROXINE

REACTIONS (1)
  - Fatigue [None]

NARRATIVE: CASE EVENT DATE: 2018
